FAERS Safety Report 13783872 (Version 3)
Quarter: 2017Q3

REPORT INFORMATION
  Report Type: Spontaneous
  Country: AU (occurrence: AU)
  Receive Date: 20170724
  Receipt Date: 20170919
  Transmission Date: 20171127
  Serious: Yes (Hospitalization, Other)
  Sender: FDA-Public Use
  Company Number: AU-ELI_LILLY_AND_COMPANY-AU201707006552

PATIENT
  Age: 35 Year
  Sex: Male

DRUGS (3)
  1. QUETIAPINE. [Concomitant]
     Active Substance: QUETIAPINE
  2. ZYPREXA RELPREVV [Suspect]
     Active Substance: OLANZAPINE PAMOATE
     Indication: SCHIZOPHRENIA
     Dosage: 405 MG, 2/M
     Route: 030
     Dates: start: 20170518, end: 201707
  3. ZYPREXA RELPREVV [Suspect]
     Active Substance: OLANZAPINE PAMOATE
     Indication: SCHIZOPHRENIA
     Dosage: 300 MG, MONTHLY (1/M)
     Route: 030
     Dates: start: 20170323

REACTIONS (5)
  - Prescribed overdose [Unknown]
  - Blood creatinine increased [Unknown]
  - Back pain [Unknown]
  - Pain in extremity [Unknown]
  - Oedema [Unknown]

NARRATIVE: CASE EVENT DATE: 201707
